FAERS Safety Report 12617960 (Version 5)
Quarter: 2018Q2

REPORT INFORMATION
  Report Type: Report from Study
  Country: US (occurrence: US)
  Receive Date: 20160803
  Receipt Date: 20180511
  Transmission Date: 20180711
  Serious: Yes (Other)
  Sender: FDA-Public Use
  Company Number: PHEH2016US018963

PATIENT
  Age: 16 Year
  Sex: Female

DRUGS (4)
  1. AFINITOR [Suspect]
     Active Substance: EVEROLIMUS
     Indication: ASTROCYTOMA, LOW GRADE
     Dosage: 5 MG, QD
     Route: 065
     Dates: start: 20160729
  2. AFINITOR [Suspect]
     Active Substance: EVEROLIMUS
     Indication: ANGIOMYOLIPOMA
     Dosage: 10 MG, QD
     Route: 048
     Dates: start: 20160505, end: 20160718
  3. AFINITOR [Suspect]
     Active Substance: EVEROLIMUS
     Dosage: 7.5 MG, QD
     Route: 048
     Dates: end: 20180129
  4. AFINITOR [Suspect]
     Active Substance: EVEROLIMUS
     Dosage: 7.5 MG, QD
     Route: 048

REACTIONS (14)
  - Erythema [Unknown]
  - Scar [Not Recovered/Not Resolved]
  - Night sweats [Unknown]
  - Menstruation irregular [Unknown]
  - Pruritus [Unknown]
  - Oligomenorrhoea [Unknown]
  - Acne [Recovering/Resolving]
  - White blood cell count decreased [Unknown]
  - Neoplasm progression [Unknown]
  - Fatigue [Unknown]
  - Furuncle [Recovering/Resolving]
  - Anaemia [Unknown]
  - Rash pustular [Not Recovered/Not Resolved]
  - Photosensitivity reaction [Unknown]

NARRATIVE: CASE EVENT DATE: 201801
